FAERS Safety Report 5208879-0 (Version None)
Quarter: 2007Q1

REPORT INFORMATION
  Report Type: 
  Country: None (occurrence: None)
  Receive Date: 20070116
  Receipt Date: 20070105
  Transmission Date: 20070707
  Serious: Yes (Hospitalization)
  Sender: FDA-Public Use
  Company Number: US-ELI_LILLY_AND_COMPANY-US200605006021

PATIENT
  Age: 48 Year
  Sex: Male
  Weight: 152.38 kg

DRUGS (1)
  1. ZYPREXA [Suspect]
     Route: 048
     Dates: start: 20000601, end: 20041001

REACTIONS (6)
  - ANGIOPLASTY [None]
  - BLOOD CHOLESTEROL ABNORMAL [None]
  - BLOOD TRIGLYCERIDES INCREASED [None]
  - DIABETES MELLITUS NON-INSULIN-DEPENDENT [None]
  - HYPOGLYCAEMIA [None]
  - WEIGHT INCREASED [None]
